FAERS Safety Report 5281390-7 (Version None)
Quarter: 2007Q1

REPORT INFORMATION
  Report Type: 
  Country: None (occurrence: None)
  Receive Date: 20070326
  Receipt Date: 20070314
  Transmission Date: 20070707
  Serious: Yes (Life-Threatening, Hospitalization)
  Sender: FDA-Public Use
  Company Number: 236022

PATIENT
  Age: 39 Year
  Sex: Male
  Weight: 114 kg

DRUGS (8)
  1. XOLAIR [Suspect]
     Indication: ASTHMA
     Dosage: SEE IMAGE
     Route: 058
     Dates: start: 20060101, end: 20070110
  2. XOLAIR [Suspect]
     Indication: ASTHMA
     Dosage: SEE IMAGE
     Route: 058
     Dates: start: 20050901
  3. PREDNISONE [Concomitant]
  4. QVAR 40 [Concomitant]
  5. POTASSIUM CHLORIDE [Concomitant]
  6. FOSAMAX [Concomitant]
  7. IPRATROPIUM (IPRATROPIUM BROMIDE) [Concomitant]
  8. BRICANYL [Concomitant]

REACTIONS (11)
  - BLOOD POTASSIUM INCREASED [None]
  - CONDITION AGGRAVATED [None]
  - CYTOLYTIC HEPATITIS [None]
  - LYMPHOCYTE PERCENTAGE DECREASED [None]
  - NEUTROPHIL PERCENTAGE INCREASED [None]
  - NO THERAPEUTIC RESPONSE [None]
  - OEDEMA PERIPHERAL [None]
  - PHARYNGOLARYNGEAL PAIN [None]
  - RENAL FAILURE [None]
  - SERUM SICKNESS [None]
  - URINARY TRACT INFECTION STAPHYLOCOCCAL [None]
